FAERS Safety Report 15280889 (Version 1)
Quarter: 2018Q3

REPORT INFORMATION
  Report Type: Spontaneous
  Country: US (occurrence: US)
  Receive Date: 20180815
  Receipt Date: 20180815
  Transmission Date: 20181010
  Serious: No
  Sender: FDA-Public Use
  Company Number: US-SYNERGY PHARMACEUTICALS INC-US-2018SNG000159

PATIENT

DRUGS (4)
  1. METOPROLOL. [Concomitant]
     Active Substance: METOPROLOL
     Indication: BLOOD PRESSURE MANAGEMENT
     Dosage: 50 MG, QD
     Route: 065
     Dates: start: 2010
  2. LEVOTHYROXINE. [Concomitant]
     Active Substance: LEVOTHYROXINE
     Indication: THYROID DISORDER
     Dosage: 75 ?G, QD
     Route: 065
     Dates: start: 2015
  3. TRULANCE [Suspect]
     Active Substance: PLECANATIDE
     Indication: IRRITABLE BOWEL SYNDROME
     Dosage: 3 MG, UNK
     Route: 065
     Dates: start: 201801, end: 201806
  4. PERCOCET                           /00446701/ [Concomitant]
     Active Substance: ACETAMINOPHEN\OXYCODONE HYDROCHLORIDE\OXYCODONE TEREPHTHALATE
     Indication: PAIN
     Dosage: 10/325MG, PRN
     Route: 065
     Dates: start: 2010

REACTIONS (5)
  - Diarrhoea [Recovering/Resolving]
  - Asthenia [Recovering/Resolving]
  - Weight decreased [Recovering/Resolving]
  - Pyrexia [Recovering/Resolving]
  - Muscle contractions involuntary [Recovering/Resolving]

NARRATIVE: CASE EVENT DATE: 201806
